FAERS Safety Report 23606523 (Version 1)
Quarter: 2024Q1

REPORT INFORMATION
  Report Type: Spontaneous
  Country: DE (occurrence: DE)
  Receive Date: 20240307
  Receipt Date: 20240307
  Transmission Date: 20240410
  Serious: Yes (Other)
  Sender: FDA-Public Use
  Company Number: DE-TEVA-VS-3166777

PATIENT
  Age: 73 Year
  Sex: Female

DRUGS (4)
  1. COTRIM [Suspect]
     Active Substance: SULFAMETHOXAZOLE\TRIMETHOPRIM
     Indication: Cystitis
     Dosage: TWO TABLETS, ONE IN THE MORNING AND ONE IN THE EVENING?STRENGTH: 800 MG/160 MG
     Route: 065
     Dates: start: 20240222, end: 20240226
  2. COTRIM [Suspect]
     Active Substance: SULFAMETHOXAZOLE\TRIMETHOPRIM
     Indication: Cystitis
     Dosage: 1 TABLET ON THURSDAY 22-FEB-2024 + FRIDAY 1-0-1 + SATURDAY 1-0-1, SUN 1-0-1?STRENGTH: 400 MG/80 MG
     Route: 065
     Dates: start: 20240222, end: 20240226
  3. LEVOTHYROXINE [Concomitant]
     Active Substance: LEVOTHYROXINE\LEVOTHYROXINE SODIUM
     Indication: Product used for unknown indication
     Route: 065
  4. CANDESARTAN [Concomitant]
     Active Substance: CANDESARTAN
     Indication: Product used for unknown indication
     Route: 065

REACTIONS (10)
  - Swollen tongue [Recovering/Resolving]
  - Tremor [Recovering/Resolving]
  - Nausea [Recovering/Resolving]
  - Dizziness [Recovering/Resolving]
  - Depression [Recovering/Resolving]
  - Malaise [Recovering/Resolving]
  - Ageusia [Recovering/Resolving]
  - Crying [Recovering/Resolving]
  - Sluggishness [Unknown]
  - Nervousness [Unknown]

NARRATIVE: CASE EVENT DATE: 20240201
